FAERS Safety Report 6450332-0 (Version None)
Quarter: 2009Q4

REPORT INFORMATION
  Report Type: 
  Country: None (occurrence: None)
  Receive Date: 20091123
  Receipt Date: 20091110
  Transmission Date: 20100525
  Serious: Yes (Life-Threatening, Hospitalization)
  Sender: FDA-Public Use
  Company Number: JP-AMGEN-US357291

PATIENT
  Sex: Female
  Weight: 62 kg

DRUGS (6)
  1. ENBREL [Suspect]
     Indication: RHEUMATOID ARTHRITIS
     Dosage: 25 MG TWICE WEEKLY; LYOPHILIZED
     Route: 058
     Dates: start: 20080519, end: 20090713
  2. ENBREL [Suspect]
     Dosage: 25 MG TWICE WEEKLY; SOLUTION FOR INJECTION
     Route: 058
     Dates: start: 20080821, end: 20090713
  3. PREDNISOLONE [Concomitant]
     Route: 048
     Dates: start: 20041125
  4. AMOBAN [Concomitant]
     Route: 048
     Dates: start: 20080716
  5. RHEUMATREX [Concomitant]
     Dosage: UNSPECIFIED
     Route: 048
     Dates: start: 20040906
  6. RHEUMATREX [Concomitant]
     Route: 048
     Dates: start: 20041125

REACTIONS (1)
  - MECHANICAL ILEUS [None]
